FAERS Safety Report 19412509 (Version 1)
Quarter: 2021Q2

REPORT INFORMATION
  Report Type: Report from Study
  Country: US (occurrence: US)
  Receive Date: 20210614
  Receipt Date: 20210614
  Transmission Date: 20210717
  Serious: Yes (Other)
  Sender: FDA-Public Use
  Company Number: US-TAKEDA-US201900854

PATIENT
  Sex: Male

DRUGS (1)
  1. HUMAN IMMUNOGLOBULIN; HYALURONIDASE [Suspect]
     Active Substance: HUMAN IMMUNOGLOBULIN G\HYALURONIDASE RECOMBINANT HUMAN
     Indication: PRIMARY IMMUNODEFICIENCY SYNDROME
     Dosage: UNK
     Route: 065

REACTIONS (24)
  - Hallucination [Unknown]
  - Tooth erosion [Unknown]
  - Nerve injury [Unknown]
  - Hypoaesthesia [Unknown]
  - Therapy interrupted [Unknown]
  - Pain [Unknown]
  - Back disorder [Unknown]
  - Ear tube insertion [Unknown]
  - Typical aura without headache [Unknown]
  - Spinal disorder [Unknown]
  - Bone loss [Unknown]
  - Musculoskeletal discomfort [Unknown]
  - Malaise [Unknown]
  - Ear disorder [Unknown]
  - Gait inability [Unknown]
  - Dysphemia [Unknown]
  - Hiatus hernia [Unknown]
  - Dizziness [Unknown]
  - Blood test abnormal [Unknown]
  - Condition aggravated [Unknown]
  - Feeling abnormal [Unknown]
  - Vision blurred [Unknown]
  - Infusion site discomfort [Unknown]
  - Fatigue [Unknown]
